FAERS Safety Report 14669318 (Version 1)
Quarter: 2018Q1

REPORT INFORMATION
  Report Type: Spontaneous
  Country: US (occurrence: US)
  Receive Date: 20180321
  Receipt Date: 20180321
  Transmission Date: 20180509
  Serious: Yes (Hospitalization)
  Sender: FDA-Public Use
  Company Number: None

PATIENT
  Age: 50 Year
  Sex: Female
  Weight: 58.05 kg

DRUGS (8)
  1. PROBIOTIC [Concomitant]
     Active Substance: PROBIOTICS NOS
  2. ADVIL [Concomitant]
     Active Substance: IBUPROFEN
  3. VITAMIN D3 [Concomitant]
     Active Substance: CHOLECALCIFEROL
  4. METOPROLOL. [Concomitant]
     Active Substance: METOPROLOL
  5. MULTI-VITAMIN [Concomitant]
     Active Substance: .ALPHA.-TOCOPHEROL ACETATE, DL-\ASCORBIC ACID\CYANOCOBALAMIN\FLUORIDE ION\FOLIC ACID\NIACIN\PYRIDOXINE\RIBOFLAVIN\THIAMINE\VITAMIN A\VITAMIN D
  6. ATIVAN [Concomitant]
     Active Substance: LORAZEPAM
  7. PLAVX [Concomitant]
  8. ATORVASTATIN [Suspect]
     Active Substance: ATORVASTATIN
     Indication: CEREBROVASCULAR ACCIDENT
     Dosage: ?          QUANTITY:1 TABLET(S);?
     Route: 048
     Dates: start: 20170504, end: 20180303

REACTIONS (16)
  - Heart rate increased [None]
  - Tremor [None]
  - Vision blurred [None]
  - Gait disturbance [None]
  - Myalgia [None]
  - Disturbance in attention [None]
  - Pain [None]
  - Memory impairment [None]
  - Anxiety [None]
  - Insomnia [None]
  - Psoriasis [None]
  - Palpitations [None]
  - Pain in extremity [None]
  - Panic attack [None]
  - Blood pressure increased [None]
  - Dysarthria [None]

NARRATIVE: CASE EVENT DATE: 20170504
